FAERS Safety Report 8596679-3 (Version None)
Quarter: 2012Q3

REPORT INFORMATION
  Report Type: 
  Country: None (occurrence: None)
  Receive Date: 20120815
  Receipt Date: 20120801
  Transmission Date: 20120928
  Serious: Yes (Other)
  Sender: FDA-Public Use
  Company Number: CA-ROCHE-1098401

PATIENT
  Sex: Female

DRUGS (3)
  1. XOLAIR [Suspect]
     Route: 058
     Dates: start: 20091113
  2. XOLAIR [Suspect]
     Indication: ASTHMA
     Route: 058
     Dates: start: 20091030
  3. PREDNISONE TAB [Concomitant]
     Dates: start: 20111116

REACTIONS (15)
  - LOSS OF CONSCIOUSNESS [None]
  - DRY THROAT [None]
  - INSOMNIA [None]
  - DYSPNOEA [None]
  - ANXIETY [None]
  - HYPERTENSION [None]
  - TREMOR [None]
  - CHEST PAIN [None]
  - FEELING ABNORMAL [None]
  - DYSPHONIA [None]
  - HEART RATE ABNORMAL [None]
  - BODY TEMPERATURE DECREASED [None]
  - PALPITATIONS [None]
  - FEELING JITTERY [None]
  - CHEST DISCOMFORT [None]
